FAERS Safety Report 15855007 (Version 2)
Quarter: 2019Q1

REPORT INFORMATION
  Report Type: Spontaneous
  Country: ES (occurrence: ES)
  Receive Date: 20190122
  Receipt Date: 20190208
  Transmission Date: 20190417
  Serious: No
  Sender: FDA-Public Use
  Company Number: ES-ALLERGAN-1902808US

PATIENT
  Age: 37 Year
  Sex: Female

DRUGS (3)
  1. ASENAPINE MALEATE - BP [Suspect]
     Active Substance: ASENAPINE MALEATE
     Indication: HYPOMANIA
     Dosage: 5 MG, QD
     Route: 060
     Dates: start: 20181219, end: 20181220
  2. GABAPENTIN. [Concomitant]
     Active Substance: GABAPENTIN
     Dosage: 600 MG, Q8HR
  3. MIRTAZAPINE. [Concomitant]
     Active Substance: MIRTAZAPINE
     Dosage: 45 MG, QHS

REACTIONS (5)
  - Hypoaesthesia oral [Recovered/Resolved]
  - Drug hypersensitivity [Unknown]
  - Lip swelling [Recovered/Resolved]
  - Product prescribing error [Unknown]
  - Lip pruritus [Recovered/Resolved]

NARRATIVE: CASE EVENT DATE: 201812
